FAERS Safety Report 6921888-6 (Version None)
Quarter: 2010Q3

REPORT INFORMATION
  Report Type: 
  Country: None (occurrence: None)
  Receive Date: 20100812
  Receipt Date: 20100803
  Transmission Date: 20110219
  Serious: Yes (Death, Hospitalization)
  Sender: FDA-Public Use
  Company Number: US-BAXTER-2010BH005333

PATIENT
  Age: 74 Year
  Sex: Male

DRUGS (2)
  1. DIANEAL [Suspect]
     Indication: PERITONEAL DIALYSIS
     Route: 033
     Dates: start: 20090923, end: 20090101
  2. DIANEAL [Suspect]
     Route: 033
     Dates: start: 20090923, end: 20090101

REACTIONS (3)
  - DEATH [None]
  - HERNIA [None]
  - PERITONITIS [None]
